FAERS Safety Report 4370769-3 (Version None)
Quarter: 2004Q2

REPORT INFORMATION
  Report Type: 
  Country: None (occurrence: None)
  Receive Date: 20040603
  Receipt Date: 20040603
  Transmission Date: 20050107
  Serious: Yes (Hospitalization)
  Sender: FDA-Public Use
  Company Number: None

PATIENT
  Sex: Female
  Weight: 97.5234 kg

DRUGS (15)
  1. DILANTIN [Suspect]
     Indication: EPILEPSY
     Dosage: 450 MG LATER 500 QD PO
     Route: 048
  2. CELLCEPT [Suspect]
     Indication: NEUROPATHY PERIPHERAL
     Dosage: 500 MG QD
     Dates: start: 20040510
  3. TPN [Concomitant]
  4. ELAVIL [Concomitant]
  5. BUSPAR [Concomitant]
  6. BENADRYL [Concomitant]
  7. SANDOSTATIN [Concomitant]
  8. RESTORIL [Concomitant]
  9. PREDNISONE [Concomitant]
  10. LASIX [Concomitant]
  11. PREVITEN [Concomitant]
  12. TOPAMAX [Concomitant]
  13. HEPARIN [Concomitant]
  14. SODIUM CHLORIDE [Concomitant]
  15. KCL TAB [Concomitant]

REACTIONS (5)
  - APHASIA [None]
  - ASTHENIA [None]
  - DIZZINESS [None]
  - NYSTAGMUS [None]
  - SOMNOLENCE [None]
